FAERS Safety Report 7489796-2 (Version None)
Quarter: 2011Q2

REPORT INFORMATION
  Report Type: 
  Country: None (occurrence: None)
  Receive Date: 20110519
  Receipt Date: 20110513
  Transmission Date: 20111010
  Serious: Yes (Other)
  Sender: FDA-Public Use
  Company Number: PL-BRISTOL-MYERS SQUIBB COMPANY-15664220

PATIENT
  Sex: Male

DRUGS (4)
  1. ABILIFY [Suspect]
     Indication: BIPOLAR DISORDER
     Dosage: 1 DF= 15 MG+ 7.5 MG
  2. OLANZAPINE [Suspect]
  3. VALPROIC ACID [Suspect]
  4. LITHIUM CARBONATE [Suspect]
     Dosage: LITHIUM CARBONICUM

REACTIONS (3)
  - ALTERED STATE OF CONSCIOUSNESS [None]
  - NEUROLEPTIC MALIGNANT SYNDROME [None]
  - ANTIPSYCHOTIC DRUG LEVEL INCREASED [None]
